FAERS Safety Report 25341811 (Version 1)
Quarter: 2025Q2

REPORT INFORMATION
  Report Type: Spontaneous
  Country: US (occurrence: None)
  Receive Date: 20250520
  Receipt Date: 20250520
  Transmission Date: 20250716
  Serious: Yes (Disabling, Other)
  Sender: FDA-CTU
  Company Number: None

PATIENT
  Age: 78 Year
  Sex: Male
  Weight: 65.25 kg

DRUGS (5)
  1. EDEX [Suspect]
     Active Substance: ALPROSTADIL
     Indication: Erectile dysfunction
     Route: 050
     Dates: start: 20250101, end: 20250520
  2. METHYLPHENIDATE [Concomitant]
     Active Substance: METHYLPHENIDATE
  3. SERTRALINE [Concomitant]
     Active Substance: SERTRALINE HYDROCHLORIDE
  4. VITAMINS [Concomitant]
     Active Substance: VITAMINS
  5. MINERALS [Concomitant]
     Active Substance: MINERALS

REACTIONS (3)
  - Confusional state [None]
  - Disorientation [None]
  - Cerebrovascular accident [None]

NARRATIVE: CASE EVENT DATE: 20250520
